FAERS Safety Report 19793389 (Version 1)
Quarter: 2021Q3

REPORT INFORMATION
  Report Type: Report from Study
  Country: KR (occurrence: KR)
  Receive Date: 20210906
  Receipt Date: 20210906
  Transmission Date: 20211014
  Serious: Yes (Death, Hospitalization, Other)
  Sender: FDA-Public Use
  Company Number: KR-JAZZ-2021-KR-001152

PATIENT
  Age: 11 Year
  Sex: Female
  Weight: 46.9 kg

DRUGS (11)
  1. PREDNISOLONE. [Concomitant]
     Active Substance: PREDNISOLONE
     Dosage: 20 MILLIGRAM, BID
     Route: 048
     Dates: start: 20201103, end: 20201106
  2. PREDNISOLONE. [Concomitant]
     Active Substance: PREDNISOLONE
     Dosage: 5 MILLIGRAM, BID
     Route: 048
     Dates: start: 20201110, end: 20201113
  3. NAFAMOSTAT [Suspect]
     Active Substance: NAFAMOSTAT
     Indication: ANTICOAGULANT THERAPY
     Dosage: 100 MILLIGRAM, QD
     Route: 042
     Dates: start: 20201201, end: 20210101
  4. DEFITELIO [Suspect]
     Active Substance: DEFIBROTIDE SODIUM
     Indication: VENOOCCLUSIVE DISEASE
     Dosage: 360 MILLIGRAM, QID
     Route: 042
     Dates: start: 20201012, end: 20201108
  5. DEFITELIO [Suspect]
     Active Substance: DEFIBROTIDE SODIUM
     Dosage: 300 MILLIGRAM, BID
     Route: 042
     Dates: start: 20201231, end: 20201231
  6. HYDROCORTISONE. [Concomitant]
     Active Substance: HYDROCORTISONE
     Indication: STEROID THERAPY
     Dosage: 50 MILLIGRAM, QD
     Route: 042
     Dates: start: 20201114, end: 20201114
  7. PREDNISOLONE. [Concomitant]
     Active Substance: PREDNISOLONE
     Dosage: 10 MILLIGRAM, BID
     Route: 048
     Dates: start: 20201107, end: 20201109
  8. PREDNISOLONE. [Concomitant]
     Active Substance: PREDNISOLONE
     Dosage: 5 MILLIGRAM, QD
     Route: 048
     Dates: start: 20201114, end: 20201118
  9. PREDNISOLONE. [Concomitant]
     Active Substance: PREDNISOLONE
     Dosage: 2.5 MILLIGRAM, QD
     Route: 048
     Dates: start: 20201119, end: 20201123
  10. ALPROSTADIL. [Suspect]
     Active Substance: ALPROSTADIL
     Indication: ANTICOAGULANT THERAPY
     Dosage: 55 UG, QD
     Route: 042
     Dates: start: 20201008, end: 20201107
  11. PREDNISOLONE. [Concomitant]
     Active Substance: PREDNISOLONE
     Indication: STEROID THERAPY
     Dosage: 20 MILLIGRAM, QD
     Route: 048
     Dates: start: 20201102, end: 20201102

REACTIONS (5)
  - Pneumonia klebsiella [Fatal]
  - Escherichia test positive [Fatal]
  - Haematuria [Not Recovered/Not Resolved]
  - Hypotension [Not Recovered/Not Resolved]
  - Graft versus host disease [Not Recovered/Not Resolved]

NARRATIVE: CASE EVENT DATE: 20201022
